FAERS Safety Report 20953987 (Version 1)
Quarter: 2022Q2

REPORT INFORMATION
  Report Type: Spontaneous
  Country: US (occurrence: US)
  Receive Date: 20220614
  Receipt Date: 20220614
  Transmission Date: 20220721
  Serious: No
  Sender: FDA-Public Use
  Company Number: US-TEVA-2022-US-2039653

PATIENT
  Sex: Male

DRUGS (1)
  1. MEXILETINE [Suspect]
     Active Substance: MEXILETINE
     Route: 065

REACTIONS (1)
  - Feeling abnormal [Unknown]
